FAERS Safety Report 19101002 (Version 1)
Quarter: 2021Q2

REPORT INFORMATION
  Report Type: Report from Study
  Country: FR (occurrence: FR)
  Receive Date: 20210407
  Receipt Date: 20210407
  Transmission Date: 20210717
  Serious: Yes (Death, Hospitalization, Other)
  Sender: FDA-Public Use
  Company Number: FR-ELI_LILLY_AND_COMPANY-FR202104000455

PATIENT
  Age: 93 Year
  Sex: Male
  Weight: 50 kg

DRUGS (1)
  1. BAMLANIVIMAB. [Suspect]
     Active Substance: BAMLANIVIMAB
     Indication: COVID-19
     Dosage: 700 MG, SINGLE
     Route: 065
     Dates: start: 20210318, end: 20210318

REACTIONS (5)
  - Sepsis [Fatal]
  - COVID-19 [Fatal]
  - Pyrexia [Fatal]
  - Urinary tract infection [Unknown]
  - Tachypnoea [Fatal]

NARRATIVE: CASE EVENT DATE: 202103
